FAERS Safety Report 26114488 (Version 1)
Quarter: 2025Q4

REPORT INFORMATION
  Report Type: Spontaneous
  Country: EU (occurrence: EU)
  Receive Date: 20251202
  Receipt Date: 20251202
  Transmission Date: 20260118
  Serious: Yes (Hospitalization)
  Sender: PRINSTON PHARMACEUTICAL
  Company Number: EU-PRINSTON PHARMACEUTICAL INC.-2025PRN00393

PATIENT
  Age: 11 Year
  Sex: Male
  Weight: 35 kg

DRUGS (4)
  1. LEVETIRACETAM [Suspect]
     Active Substance: LEVETIRACETAM
     Indication: Seizure
     Dosage: 30 MG/KG (OVER 30 MINUTES) (DAY 3)
     Route: 042
  2. LEVETIRACETAM [Suspect]
     Active Substance: LEVETIRACETAM
     Dosage: 10 MG/KG (OVER 30 MINUTES) (ON DAY 4, APPROXIMATELY 12 HOURS AFTER  THE LOADING DOSE)
     Route: 042
  3. LEVETIRACETAM [Suspect]
     Active Substance: LEVETIRACETAM
     Dosage: 20 MG/KG, 1X/DAY (IN 2 DIVIDED DOSES)
     Route: 042
  4. SODIUM CHLORIDE [Concomitant]
     Active Substance: SODIUM CHLORIDE
     Dosage: UNK

REACTIONS (1)
  - Metabolic acidosis [Recovered/Resolved]
